FAERS Safety Report 20683241 (Version 1)
Quarter: 2022Q2

REPORT INFORMATION
  Report Type: Spontaneous
  Country: SE (occurrence: SE)
  Receive Date: 20220407
  Receipt Date: 20220407
  Transmission Date: 20220721
  Serious: Yes (Other)
  Sender: FDA-Public Use
  Company Number: None

PATIENT
  Age: 30 Year
  Sex: Male

DRUGS (6)
  1. VERAPAMIL [Suspect]
     Active Substance: VERAPAMIL HYDROCHLORIDE
     Indication: Cluster headache
     Dosage: UNK, (INITIALLY 600 MG/DAY LATER INCREASED TO 1200MG/DAY (DOSE CONTROLLED)
     Route: 048
     Dates: start: 20170101
  2. NABIXIMOLS [Concomitant]
     Active Substance: NABIXIMOLS
     Dosage: UNK, (4+4 TABLETS DAILY)
  3. LITHIUM SULFATE [Concomitant]
     Active Substance: LITHIUM SULFATE
     Dosage: UNK, (4+4 TABLETS DAILY)
  4. NARATRIPTAN ORIFARM [Concomitant]
     Dosage: 2.5 MILLIGRAM, (1 TABLET WHEN NEEDED)
  5. PREDNISOLONE [Concomitant]
     Active Substance: PREDNISOLONE
     Dosage: 5 MILLIGRAM, (1 TABLET WHEN NEEDED)
  6. ZOMIG [Concomitant]
     Active Substance: ZOLMITRIPTAN
     Dosage: 5 MILLIGRAM, (DOSE, 1 SPRAY VB)

REACTIONS (4)
  - Tooth extraction [Not Recovered/Not Resolved]
  - Periodontitis [Not Recovered/Not Resolved]
  - Tooth resorption [Not Recovered/Not Resolved]
  - Gingival hypertrophy [Not Recovered/Not Resolved]

NARRATIVE: CASE EVENT DATE: 20170928
